FAERS Safety Report 5602753-3 (Version None)
Quarter: 2008Q1

REPORT INFORMATION
  Report Type: 
  Country: None (occurrence: None)
  Receive Date: 20080125
  Receipt Date: 20080123
  Transmission Date: 20080703
  Serious: Yes (Death)
  Sender: FDA-Public Use
  Company Number: FR-BRISTOL-MYERS SQUIBB COMPANY-14050876

PATIENT
  Age: 73 Year
  Sex: Female

DRUGS (6)
  1. COAPROVEL TABS [Suspect]
     Dates: start: 20070101
  2. ATENOLOL [Suspect]
     Dates: start: 20040101
  3. PLAVIX [Suspect]
     Dates: start: 20040101
  4. ALDACTONE [Suspect]
     Dates: start: 20070101
  5. INSULIN [Suspect]
     Dates: start: 19940101
  6. ACTOS [Suspect]
     Dates: start: 20070827

REACTIONS (2)
  - SUDDEN DEATH [None]
  - WEIGHT INCREASED [None]
